FAERS Safety Report 18874678 (Version 3)
Quarter: 2021Q1

REPORT INFORMATION
  Report Type: Spontaneous
  Country: US (occurrence: US)
  Receive Date: 20210210
  Receipt Date: 20210325
  Transmission Date: 20210420
  Serious: Yes (Other)
  Sender: FDA-Public Use
  Company Number: US-JNJFOC-20210217947

PATIENT
  Age: 77 Year
  Sex: Male
  Weight: 52 kg

DRUGS (1)
  1. ZYTIGA [Suspect]
     Active Substance: ABIRATERONE ACETATE
     Indication: PROSTATE CANCER
     Route: 048
     Dates: start: 2018, end: 202009

REACTIONS (2)
  - Recurrent cancer [Unknown]
  - Drug ineffective [Unknown]

NARRATIVE: CASE EVENT DATE: 202009
